FAERS Safety Report 10824545 (Version 1)
Quarter: 2015Q1

REPORT INFORMATION
  Report Type: Spontaneous
  Country: ES (occurrence: None)
  Receive Date: 20150213
  Receipt Date: 20150213
  Transmission Date: 20150721
  Serious: Yes (Hospitalization, Other)
  Sender: FDA-Public Use
  Company Number: 2014BI070544

PATIENT
  Age: 46 Year
  Sex: Male

DRUGS (7)
  1. TYSABRI [Suspect]
     Active Substance: NATALIZUMAB
     Indication: MULTIPLE SCLEROSIS
     Route: 042
  2. MOTILIUM [Concomitant]
     Active Substance: DOMPERIDONE
  3. TRYPTIZOL [Concomitant]
     Active Substance: AMITRIPTYLINE HYDROCHLORIDE
  4. CEMIDON [Concomitant]
     Active Substance: ISONIAZID
  5. TRANXILIUM [Concomitant]
     Active Substance: CLORAZEPATE DIPOTASSIUM
  6. DETRUSITOL [Concomitant]
     Active Substance: TOLTERODINE TARTRATE
  7. OMEPRAZOLE. [Concomitant]
     Active Substance: OMEPRAZOLE

REACTIONS (8)
  - Blood bilirubin increased [None]
  - Asthenia [None]
  - Transaminases increased [None]
  - Hepatic steatosis [None]
  - Jaundice [None]
  - Hepatitis toxic [None]
  - Blood alkaline phosphatase increased [None]
  - Normochromic normocytic anaemia [None]
